FAERS Safety Report 8080644-9 (Version None)
Quarter: 2012Q1

REPORT INFORMATION
  Report Type: 
  Country: None (occurrence: None)
  Receive Date: 20120130
  Receipt Date: 20120118
  Transmission Date: 20120608
  Serious: Yes (Hospitalization)
  Sender: FDA-Public Use
  Company Number: PHHY2012JP004913

PATIENT
  Sex: Male

DRUGS (3)
  1. ACTOS [Suspect]
     Indication: HYPERTENSION
     Dosage: 30 MG, QD
     Route: 048
  2. RASILEZ [Suspect]
     Indication: HYPERTENSION
     Dosage: 150 MG, QD
     Route: 048
     Dates: start: 20111201
  3. OLMESARTAN MEDOXOMIL [Concomitant]
     Route: 048

REACTIONS (3)
  - PULMONARY CONGESTION [None]
  - DYSPNOEA [None]
  - PLEURAL EFFUSION [None]
